FAERS Safety Report 24550130 (Version 1)
Quarter: 2024Q4

REPORT INFORMATION
  Report Type: Spontaneous
  Country: US (occurrence: None)
  Receive Date: 20241025
  Receipt Date: 20241025
  Transmission Date: 20250115
  Serious: Yes (Hospitalization)
  Sender: Public
  Company Number: None

PATIENT
  Age: 65 Year
  Sex: Female
  Weight: 59.9 kg

DRUGS (4)
  1. FLUOROURACIL [Suspect]
     Active Substance: FLUOROURACIL
     Dates: end: 20241002
  2. LEUCOVORIN CALCIUM [Suspect]
     Active Substance: LEUCOVORIN CALCIUM
     Dates: end: 20241001
  3. NIVOLUMAB [Suspect]
     Active Substance: NIVOLUMAB
     Dates: end: 20241001
  4. ELOXATIN [Suspect]
     Active Substance: OXALIPLATIN
     Dates: end: 20241001

REACTIONS (8)
  - Confusional state [None]
  - Mental status changes [None]
  - Colitis [None]
  - Clostridium difficile infection [None]
  - Deep vein thrombosis [None]
  - Dyspnoea [None]
  - Lethargy [None]
  - Multiple drug therapy [None]

NARRATIVE: CASE EVENT DATE: 20241007
